FAERS Safety Report 8015952-0 (Version None)
Quarter: 2011Q4

REPORT INFORMATION
  Report Type: 
  Country: None (occurrence: None)
  Receive Date: 20111230
  Receipt Date: 20111207
  Transmission Date: 20120403
  Serious: Yes (Hospitalization, Other)
  Sender: FDA-Public Use
  Company Number: US-ROCHE-788639

PATIENT
  Sex: Male
  Weight: 53.118 kg

DRUGS (6)
  1. DOXYCYCLINE [Concomitant]
     Indication: ACNE
  2. MINOCIN [Concomitant]
     Indication: ACNE
  3. ACCUTANE [Suspect]
     Indication: ACNE
     Route: 065
     Dates: start: 19840101, end: 19850101
  4. ACCUTANE [Suspect]
     Route: 065
     Dates: start: 19851001, end: 19870101
  5. ACCUTANE [Suspect]
     Route: 065
     Dates: start: 19870601, end: 19870701
  6. TETRACYCLINE [Concomitant]
     Indication: ACNE

REACTIONS (6)
  - PERINEAL ABSCESS [None]
  - COLITIS ULCERATIVE [None]
  - EMOTIONAL DISTRESS [None]
  - CROHN'S DISEASE [None]
  - INFLAMMATORY BOWEL DISEASE [None]
  - ANAL FISTULA [None]
